FAERS Safety Report 8760312 (Version 2)
Quarter: 2012Q4

REPORT INFORMATION
  Report Type: Spontaneous
  Country: JP (occurrence: None)
  Receive Date: 20120820
  Receipt Date: 20121002
  Transmission Date: 20130627
  Serious: No
  Sender: FDA-Public Use
  Company Number: JP-2012-16014

PATIENT
  Age: 61 Year
  Sex: Male
  Weight: 56 kg

DRUGS (15)
  1. SAMSCA (TOLVAPTAN) TABLET [Suspect]
     Indication: FLUID RETENTION
     Route: 048
     Dates: start: 20120721, end: 20120724
  2. LASIX (FUROSEMIDE) [Concomitant]
  3. ALDACTONE A (SPIRONOLACTONE) [Concomitant]
  4. FLUITRAN (TRICHLOMETHIAZIDE) [Concomitant]
  5. TANATRIL (IMIDAPRIL HYDROCHLORIDE) [Concomitant]
  6. TAKEPRON (LANSOPRAZOLE) [Concomitant]
  7. BAYASPIRIN (ACETYLSALICYLIC ACID) [Concomitant]
  8. MEVALOTIN (PRAVASTATIN SODIUM) [Concomitant]
  9. PIMOBENDAN (PIMOBENDAN) [Concomitant]
  10. AMIODARONE HYDROCHLORIDE (AMIODARONE HYDROCHLORIDE) [Concomitant]
  11. WARFARIN (WARFARIN SODIUM) [Concomitant]
  12. MAGMITT (MAGNESIUM OXIDE) [Concomitant]
  13. MAINTATE (BISOPROLOL FUMARATE) [Concomitant]
  14. FEBURIC (FEBUXOSTAT) [Concomitant]
  15. NESP (DARBEPOETIN ALFA) [Concomitant]

REACTIONS (2)
  - Prerenal failure [None]
  - Dehydration [None]
